FAERS Safety Report 24754097 (Version 1)
Quarter: 2024Q4

REPORT INFORMATION
  Report Type: Spontaneous
  Country: US (occurrence: None)
  Receive Date: 20241218
  Receipt Date: 20241218
  Transmission Date: 20250115
  Serious: Yes (Hospitalization)
  Sender: Public
  Company Number: None

PATIENT
  Age: 36 Year
  Sex: Female
  Weight: 108 kg

DRUGS (10)
  1. MOUNJARO [Suspect]
     Active Substance: TIRZEPATIDE
     Indication: Diabetes mellitus
     Route: 058
     Dates: start: 20241010, end: 20241011
  2. Metformin, [Concomitant]
  3. tizanidine, [Concomitant]
  4. lisonipril, [Concomitant]
  5. rosuvoustatin, [Concomitant]
  6. morphine, [Concomitant]
  7. duloxatine, [Concomitant]
  8. buspirone, [Concomitant]
  9. gabipentin, [Concomitant]
  10. TRAZODONE [Concomitant]
     Active Substance: TRAZODONE HYDROCHLORIDE

REACTIONS (17)
  - Sensitive skin [None]
  - Pain of skin [None]
  - Migraine [None]
  - Anxiety [None]
  - Panic attack [None]
  - Gastrointestinal disorder [None]
  - Gastrointestinal pain [None]
  - Gastrointestinal pain [None]
  - Gastrooesophageal reflux disease [None]
  - Cognitive disorder [None]
  - Disorientation [None]
  - Dizziness [None]
  - Memory impairment [None]
  - Bedridden [None]
  - Mood altered [None]
  - Treatment noncompliance [None]
  - Loss of personal independence in daily activities [None]

NARRATIVE: CASE EVENT DATE: 20241011
